FAERS Safety Report 9571886 (Version 2)
Quarter: 2013Q4

REPORT INFORMATION
  Report Type: Report from Study
  Country: US (occurrence: US)
  Receive Date: 20131001
  Receipt Date: 20131001
  Transmission Date: 20140711
  Serious: No
  Sender: FDA-Public Use
  Company Number: US-ABBVIE-12P-163-0945559-00

PATIENT
  Age: 18 Year
  Sex: Female

DRUGS (2)
  1. KALETRA TABLETS [Suspect]
     Indication: ANTIVIRAL TREATMENT
     Route: 048
     Dates: start: 20100830
  2. COMBIVIR [Suspect]
     Indication: ANTIVIRAL TREATMENT
     Route: 048
     Dates: start: 20100830

REACTIONS (2)
  - Chlamydial infection [Unknown]
  - Gonorrhoea [Unknown]
